FAERS Safety Report 9391690 (Version 1)
Quarter: 2013Q3

REPORT INFORMATION
  Report Type: Spontaneous
  Country: US (occurrence: None)
  Receive Date: 20130705
  Receipt Date: 20130705
  Transmission Date: 20140515
  Serious: Yes (Other)
  Sender: FDA-Public Use
  Company Number: ACO_37148_2013

PATIENT
  Age: 32 Year
  Sex: Female
  Weight: 57.1 kg

DRUGS (3)
  1. AMPYRA (DALFAMPRIDINE) TABLET, 10MG [Suspect]
     Indication: GAIT DISTURBANCE
     Route: 048
     Dates: start: 20130410, end: 201306
  2. AVONEX (INTERFERON BETA-1A) [Concomitant]
  3. BUSPIRONE (BUSPIRONE) [Concomitant]

REACTIONS (7)
  - Hallucination [None]
  - Nervousness [None]
  - Weight decreased [None]
  - Multiple sclerosis relapse [None]
  - Dizziness [None]
  - Insomnia [None]
  - Constipation [None]
